FAERS Safety Report 8049954-5 (Version None)
Quarter: 2012Q1

REPORT INFORMATION
  Report Type: 
  Country: None (occurrence: None)
  Receive Date: 20120117
  Receipt Date: 20120112
  Transmission Date: 20120608
  Serious: Yes (Hospitalization, Other)
  Sender: FDA-Public Use
  Company Number: US-PFIZER INC-2011280801

PATIENT
  Sex: Male
  Weight: 64.399 kg

DRUGS (2)
  1. PROCARDIA XL [Suspect]
     Indication: HYPERTENSION
     Dosage: 30 MG, DAILY
     Route: 048
  2. TENORMIN [Concomitant]
     Indication: HYPERTENSION
     Dosage: 25 MG, DAILY
     Route: 048

REACTIONS (3)
  - SKULL FRACTURE [None]
  - CORONARY ARTERY BYPASS [None]
  - FALL [None]
